FAERS Safety Report 5682160-8 (Version None)
Quarter: 2008Q1

REPORT INFORMATION
  Report Type: 
  Country: None (occurrence: None)
  Receive Date: 20080327
  Receipt Date: 20080321
  Transmission Date: 20080703
  Serious: Yes (Hospitalization)
  Sender: FDA-Public Use
  Company Number: FR-SP-2008-00625

PATIENT
  Age: 66 Year
  Sex: Male

DRUGS (2)
  1. IMMUCYST [Suspect]
     Indication: BLADDER CANCER
     Route: 043
     Dates: start: 20071211, end: 20080121
  2. IMMUCYST [Suspect]
     Route: 043
     Dates: start: 20071211, end: 20080121

REACTIONS (4)
  - APHTHOUS STOMATITIS [None]
  - ARTHRALGIA [None]
  - CONJUNCTIVITIS [None]
  - PENILE ULCERATION [None]
